FAERS Safety Report 5403294-9 (Version None)
Quarter: 2007Q3

REPORT INFORMATION
  Report Type: 
  Country: None (occurrence: None)
  Receive Date: 20070801
  Receipt Date: 20070730
  Transmission Date: 20080115
  Serious: Yes (Hospitalization, Other)
  Sender: FDA-Public Use
  Company Number: PE-BRISTOL-MYERS SQUIBB COMPANY-13857610

PATIENT
  Age: 49 Year
  Sex: Female

DRUGS (2)
  1. DASATINIB [Suspect]
     Indication: LEUKAEMIA
     Route: 048
     Dates: start: 20060116, end: 20070721
  2. COTRIM [Concomitant]
     Dates: start: 20070715, end: 20070719

REACTIONS (2)
  - ANAEMIA [None]
  - GASTROINTESTINAL INFECTION [None]
